FAERS Safety Report 16647556 (Version 1)
Quarter: 2019Q3

REPORT INFORMATION
  Report Type: Report from Study
  Country: IL (occurrence: IL)
  Receive Date: 20190730
  Receipt Date: 20190730
  Transmission Date: 20191004
  Serious: Yes (Other)
  Sender: FDA-Public Use
  Company Number: IL-SA-2019SA019781

PATIENT
  Age: 67 Year
  Sex: Male

DRUGS (6)
  1. SIMVACOR [Concomitant]
     Active Substance: SIMVASTATIN
     Indication: BLOOD CHOLESTEROL
     Dosage: 40 MG, QD (IN THE EVENING)
  2. ENALADEX [Concomitant]
     Active Substance: ENALAPRIL MALEATE
     Indication: BLOOD PRESSURE MEASUREMENT
     Dosage: UNK UNK, UNK
  3. INSULIN GLARGINE/LIXISENATIDE [Suspect]
     Active Substance: INSULIN GLARGINE\LIXISENATIDE
     Dosage: 30 DOSE STEPS
     Route: 058
  4. INSULIN GLARGINE/LIXISENATIDE [Suspect]
     Active Substance: INSULIN GLARGINE\LIXISENATIDE
     Indication: TYPE 2 DIABETES MELLITUS
     Dosage: 34 U, QD
     Route: 058
     Dates: start: 20190121
  5. INSULIN GLARGINE/LIXISENATIDE [Suspect]
     Active Substance: INSULIN GLARGINE\LIXISENATIDE
     Dosage: 34 DOSE STEPS
     Route: 065
     Dates: start: 20190120
  6. GLUCOMINE [METFORMIN HYDROCHLORIDE] [Concomitant]
     Dosage: UNK UNK, QD

REACTIONS (7)
  - Blindness [Unknown]
  - Abdominal pain [Recovering/Resolving]
  - Diarrhoea [Recovering/Resolving]
  - Chest discomfort [Recovered/Resolved]
  - Asthenia [Not Recovered/Not Resolved]
  - Vision blurred [Unknown]
  - Injection site pain [Not Recovered/Not Resolved]

NARRATIVE: CASE EVENT DATE: 20190120
